FAERS Safety Report 20099327 (Version 2)
Quarter: 2021Q4

REPORT INFORMATION
  Report Type: Report from Study
  Country: US (occurrence: US)
  Receive Date: 20211122
  Receipt Date: 20211213
  Transmission Date: 20220303
  Serious: Yes (Death, Other)
  Sender: FDA-Public Use
  Company Number: US-AMRYT PHARMACEUTICALS DAC-AEGR005125

PATIENT
  Age: 12 Year
  Sex: Female
  Weight: 33.016 kg

DRUGS (6)
  1. METRELEPTIN [Suspect]
     Active Substance: METRELEPTIN
     Indication: Congenital generalised lipodystrophy
     Dosage: 2 MILLIGRAM, QD
     Route: 058
     Dates: start: 20201111, end: 20210923
  2. BACTERIOSTATIC WATER [Concomitant]
     Active Substance: WATER
     Indication: Product used for unknown indication
  3. FISH OIL [Concomitant]
     Active Substance: FISH OIL
     Indication: Blood triglycerides increased
     Dosage: 5 MILLILITER, QD
     Route: 048
     Dates: start: 20200127
  4. FISH OIL [Concomitant]
     Active Substance: FISH OIL
     Dosage: 2400 MILLIGRAM, QD
     Route: 048
     Dates: start: 2015
  5. ALBUTEROL SULFATE [Concomitant]
     Active Substance: ALBUTEROL SULFATE
     Indication: Product used for unknown indication
  6. ATENOLOL [Concomitant]
     Active Substance: ATENOLOL
     Indication: Arrhythmia
     Dosage: 8.25 MILLIGRAM, BID
     Dates: start: 20150709

REACTIONS (9)
  - Death [Fatal]
  - Fall [Fatal]
  - Unresponsive to stimuli [Fatal]
  - Injection site pain [Unknown]
  - COVID-19 [Recovered/Resolved]
  - Asthenia [Unknown]
  - Skin laceration [Recovered/Resolved]
  - Product dose omission issue [Unknown]
  - Product use complaint [Unknown]

NARRATIVE: CASE EVENT DATE: 20210223
